FAERS Safety Report 4493715-0 (Version None)
Quarter: 2004Q4

REPORT INFORMATION
  Report Type: 
  Country: None (occurrence: None)
  Receive Date: 20041102
  Receipt Date: 20041020
  Transmission Date: 20050328
  Serious: Yes (Other)
  Sender: FDA-Public Use
  Company Number: 2004081169

PATIENT
  Sex: Female

DRUGS (6)
  1. DILANTIN [Suspect]
     Indication: EPILEPSY
  2. NEURONTIN [Suspect]
     Indication: EPILEPSY
  3. LAMOTRIGINE [Suspect]
     Indication: EPILEPSY
  4. PHENOBARBITAL TAB [Suspect]
     Indication: EPILEPSY
  5. CARBAMAZEPINE [Suspect]
     Indication: EPILEPSY
  6. PRIMIDONE [Suspect]
     Indication: EPILEPSY

REACTIONS (2)
  - DRUG TOLERANCE DECREASED [None]
  - GRAND MAL CONVULSION [None]
